FAERS Safety Report 8911140 (Version 1)
Quarter: 2012Q4

REPORT INFORMATION
  Report Type: 
  Country: US (occurrence: US)
  Receive Date: 20121116
  Receipt Date: 20121116
  Transmission Date: 20130627
  Serious: No
  Sender: FDA-Public Use
  Company Number: US-GLAXOSMITHKLINE-A0986363A

PATIENT
  Age: 54 Year
  Sex: Female

DRUGS (3)
  1. VOTRIENT [Suspect]
     Indication: PRODUCT USED FOR UNKNOWN INDICATION
     Dosage: 800MG Per day
     Route: 048
     Dates: start: 20120608
  2. ONDANSETRON [Concomitant]
  3. PANTOPRAZOLE [Concomitant]

REACTIONS (2)
  - Fatigue [Unknown]
  - Impaired healing [Unknown]
